FAERS Safety Report 19267724 (Version 1)
Quarter: 2021Q2

REPORT INFORMATION
  Report Type: Other
  Country: MX (occurrence: MX)
  Receive Date: 20210517
  Receipt Date: 20210517
  Transmission Date: 20210717
  Serious: Yes (Hospitalization)
  Sender: FDA-Public Use
  Company Number: MX-B.BRAUN MEDICAL INC.-2110620

PATIENT
  Age: 7 Year
  Sex: Male

DRUGS (2)
  1. INTRAVENOUS FLUIDS ? UNSPECIFIED [Concomitant]
  2. DEXTROSE INJECTIONS USP 0264?7510?00 0264?7510?20 [Suspect]
     Active Substance: DEXTROSE
     Route: 042

REACTIONS (1)
  - Drug ineffective [None]
